FAERS Safety Report 19713139 (Version 1)
Quarter: 2021Q3

REPORT INFORMATION
  Report Type: Spontaneous
  Country: US (occurrence: US)
  Receive Date: 20210817
  Receipt Date: 20210817
  Transmission Date: 20211014
  Serious: No
  Sender: FDA-Public Use
  Company Number: US-JAZZ-JPI-P-034226

PATIENT
  Age: 40 Year
  Sex: Female
  Weight: 83.18 kg

DRUGS (9)
  1. XYREM [Suspect]
     Active Substance: SODIUM OXYBATE
     Indication: NARCOLEPSY
     Dosage: UNKNOWN SINGLE (UNSPECIFIED DOSE)
     Route: 048
     Dates: start: 201305, end: 2013
  2. PROVIGIL [Concomitant]
     Active Substance: MODAFINIL
  3. PHENTERMINE. [Concomitant]
     Active Substance: PHENTERMINE
  4. LISINOPRIL. [Concomitant]
     Active Substance: LISINOPRIL
  5. IRON [Concomitant]
     Active Substance: IRON
  6. PROMETHAZINE [Concomitant]
     Active Substance: PROMETHAZINE HYDROCHLORIDE
  7. GABAPENTIN. [Concomitant]
     Active Substance: GABAPENTIN
  8. XYREM [Suspect]
     Active Substance: SODIUM OXYBATE
     Dosage: 3.75 GRAM, BID
     Route: 048
     Dates: start: 2013
  9. SPIRONOLACTONE. [Concomitant]
     Active Substance: SPIRONOLACTONE

REACTIONS (2)
  - Acne [Recovering/Resolving]
  - Dental caries [Recovered/Resolved]

NARRATIVE: CASE EVENT DATE: 201307
